FAERS Safety Report 7876038-9 (Version None)
Quarter: 2011Q4

REPORT INFORMATION
  Report Type: 
  Country: None (occurrence: None)
  Receive Date: 20111031
  Receipt Date: 20111027
  Transmission Date: 20120403
  Serious: Yes (Other)
  Sender: FDA-Public Use
  Company Number: US-VERTEX PHARMACEUTICALS INC.-AE-2011-002144

PATIENT
  Sex: Male
  Weight: 104.42 kg

DRUGS (13)
  1. FAMOTIDINE [Concomitant]
  2. PHENERGAN HCL [Concomitant]
  3. PEGASYS [Concomitant]
     Indication: HEPATITIS C
     Route: 058
     Dates: start: 20110912
  4. ALBUTEROL [Concomitant]
  5. NEURONTIN [Concomitant]
  6. PROZAC [Concomitant]
  7. INCIVEK [Suspect]
     Indication: HEPATITIS C
     Route: 048
     Dates: start: 20110912
  8. ADVAIR DISKUS 100/50 [Concomitant]
  9. NORCO [Concomitant]
  10. CALCIUM CARBONATE [Concomitant]
  11. RIBAVIRIN [Concomitant]
     Indication: HEPATITIS C
     Dates: start: 20110912
  12. PROTONIX [Concomitant]
  13. SEROQUEL [Concomitant]

REACTIONS (5)
  - FLUSHING [None]
  - ABDOMINAL PAIN [None]
  - NAUSEA [None]
  - VOMITING [None]
  - PRURITUS [None]
